FAERS Safety Report 6870046-2 (Version None)
Quarter: 2010Q3

REPORT INFORMATION
  Report Type: 
  Country: None (occurrence: None)
  Receive Date: 20100722
  Receipt Date: 20100712
  Transmission Date: 20110219
  Serious: Yes (Other)
  Sender: FDA-Public Use
  Company Number: JP-PFIZER INC-2010076922

PATIENT
  Age: 58 Year
  Sex: Male

DRUGS (2)
  1. LIPITOR [Suspect]
     Indication: HYPERCHOLESTEROLAEMIA
     Dosage: 5 MG, UID/1X/DAY
     Route: 048
     Dates: start: 20091204, end: 20100226
  2. DIOVAN [Suspect]
     Indication: HYPERTENSION
     Dosage: 40 MG, UID/1X/DAY
     Route: 048
     Dates: start: 20090911

REACTIONS (5)
  - BLOOD CALCIUM DECREASED [None]
  - BLOOD CREATINE PHOSPHOKINASE INCREASED [None]
  - HYPOAESTHESIA [None]
  - HYPOCALCAEMIA [None]
  - TETANY [None]
